FAERS Safety Report 4673775-4 (Version None)
Quarter: 2005Q2

REPORT INFORMATION
  Report Type: 
  Country: None (occurrence: None)
  Receive Date: 20050525
  Receipt Date: 20050516
  Transmission Date: 20051028
  Serious: Yes (Other)
  Sender: FDA-Public Use
  Company Number: US-ABBOTT-05P-163-0301262-00

PATIENT
  Sex: Female

DRUGS (1)
  1. MERIDIA [Suspect]
     Indication: DRUG USE FOR UNKNOWN INDICATION
     Dates: start: 19980304, end: 19980828

REACTIONS (5)
  - BLINDNESS [None]
  - HEADACHE [None]
  - LABILE HYPERTENSION [None]
  - RETINAL VEIN OCCLUSION [None]
  - VISION BLURRED [None]
